FAERS Safety Report 7504594-9 (Version None)
Quarter: 2011Q2

REPORT INFORMATION
  Report Type: 
  Country: None (occurrence: None)
  Receive Date: 20110525
  Receipt Date: 20110516
  Transmission Date: 20111010
  Serious: Yes (Other)
  Sender: FDA-Public Use
  Company Number: US-AMGEN-USASP2011022651

PATIENT
  Age: 59 Year
  Sex: Male

DRUGS (3)
  1. ENBREL [Suspect]
     Indication: PSORIASIS
     Dosage: 50 MG, QWK
     Route: 058
     Dates: start: 20071220
  2. ENBREL [Suspect]
     Indication: ANKYLOSING SPONDYLITIS
  3. ENBREL [Suspect]
     Indication: PSORIATIC ARTHROPATHY

REACTIONS (10)
  - THINKING ABNORMAL [None]
  - VIRAL INFECTION [None]
  - DIZZINESS [None]
  - ARTHRALGIA [None]
  - SPEECH DISORDER [None]
  - PSORIATIC ARTHROPATHY [None]
  - DIARRHOEA [None]
  - VERTIGO [None]
  - NASOPHARYNGITIS [None]
  - BACK PAIN [None]
